FAERS Safety Report 10174857 (Version 1)
Quarter: 2014Q2

REPORT INFORMATION
  Report Type: Spontaneous
  Country: US (occurrence: None)
  Receive Date: 20140416
  Receipt Date: 20140416
  Transmission Date: 20141212
  Serious: Yes (Hospitalization, Other)
  Sender: FDA-Public Use
  Company Number: 163-POMAL-13124553

PATIENT
  Age: 64 Year
  Sex: Male

DRUGS (4)
  1. POMALYST [Suspect]
     Indication: PLASMA CELL MYELOMA
     Dosage: 4 MG, 21 IN 28 D, PO
     Route: 048
     Dates: start: 201303
  2. POMALYST [Suspect]
     Indication: NASOPHARYNGITIS
     Dosage: 4 MG, 21 IN 28 D, PO
     Route: 048
     Dates: start: 201303
  3. POMALYST [Suspect]
     Indication: PYREXIA
     Dosage: 4 MG, 21 IN 28 D, PO
     Route: 048
     Dates: start: 201303
  4. ANTIBIOTICS (ANTIBIOTICS) [Concomitant]

REACTIONS (1)
  - Pneumonia [None]
